FAERS Safety Report 10500848 (Version 2)
Quarter: 2014Q4

REPORT INFORMATION
  Report Type: Spontaneous
  Country: US (occurrence: US)
  Receive Date: 20141007
  Receipt Date: 20141104
  Transmission Date: 20150528
  Serious: No
  Sender: FDA-Public Use
  Company Number: US-009507513-1410USA002648

PATIENT
  Age: 19 Year
  Sex: Female
  Weight: 89.8 kg

DRUGS (2)
  1. NUVARING [Suspect]
     Active Substance: ETHINYL ESTRADIOL\ETONOGESTREL
     Indication: CONTRACEPTION
     Dosage: UNK, QM(3 WEEKS IN 1 WEEK REMOVAL)
     Route: 067
     Dates: start: 201305, end: 201410
  2. ADVIL [Concomitant]
     Active Substance: IBUPROFEN
     Indication: PAIN
     Dosage: UNK, PRN

REACTIONS (6)
  - Abdominal pain upper [Unknown]
  - Depression [Unknown]
  - Anxiety [Unknown]
  - Adverse event [Unknown]
  - Gallbladder disorder [Unknown]
  - General symptom [Unknown]

NARRATIVE: CASE EVENT DATE: 201410
